FAERS Safety Report 19097319 (Version 1)
Quarter: 2021Q2

REPORT INFORMATION
  Report Type: Spontaneous
  Country: US (occurrence: US)
  Receive Date: 20210406
  Receipt Date: 20210406
  Transmission Date: 20210717
  Serious: Yes (Hospitalization)
  Sender: FDA-Public Use
  Company Number: None

PATIENT
  Sex: Male

DRUGS (11)
  1. BUMETANIDE. [Concomitant]
     Active Substance: BUMETANIDE
  2. ENOXAPARIN [Concomitant]
     Active Substance: ENOXAPARIN
  3. SPIRONO/HCTZ [Concomitant]
  4. MELATONIN [Concomitant]
     Active Substance: MELATONIN
  5. RISPERIDONE. [Concomitant]
     Active Substance: RISPERIDONE
  6. TOBRAMYCIN 300MG/5ML [Suspect]
     Active Substance: TOBRAMYCIN
     Indication: CYSTIC FIBROSIS
     Dosage: 5 ML QOM INHALE VIA NEBULIZER
     Route: 055
     Dates: start: 20200505
  7. TUME E?X [Concomitant]
  8. AZITHROMYCIN ANHYDROUS. [Concomitant]
     Active Substance: AZITHROMYCIN ANHYDROUS
  9. PULMOZYME [Concomitant]
     Active Substance: DORNASE ALFA
  10. OMEPRAZOLE. [Concomitant]
     Active Substance: OMEPRAZOLE
  11. PHYTONADIONE. [Concomitant]
     Active Substance: PHYTONADIONE

REACTIONS (4)
  - Headache [None]
  - Cough [None]
  - SARS-CoV-2 test positive [None]
  - Therapy interrupted [None]
